FAERS Safety Report 9521821 (Version 1)
Quarter: 2013Q1

REPORT INFORMATION
  Report Type: Spontaneous
  Country: US (occurrence: None)
  Receive Date: 20130305
  Receipt Date: 20130305
  Transmission Date: 20140127
  Serious: Yes (Other)
  Sender: FDA-Public Use
  Company Number: 163-21880-12033125

PATIENT
  Age: 64 Year
  Sex: Female
  Weight: 72.58 kg

DRUGS (2)
  1. REVLIMID (LENALIDOMIDE) (25 MILLIGRAM, CAPSULES) [Suspect]
     Indication: PLASMA CELL MYELOMA
     Dosage: 25 MG, QD DAYS 1/21, PO
     Route: 048
     Dates: start: 20120214, end: 20120219
  2. NORVASC (AMLODIPINE BESILATE) [Concomitant]

REACTIONS (1)
  - Urticaria [None]
